FAERS Safety Report 19735215 (Version 2)
Quarter: 2021Q3

REPORT INFORMATION
  Report Type: Report from Study
  Country: None (occurrence: CA)
  Receive Date: 20210824
  Receipt Date: 20210827
  Transmission Date: 20211014
  Serious: Yes (Hospitalization, Other)
  Sender: FDA-Public Use
  Company Number: CA-ABBVIE-21K-028-4026164-00

PATIENT
  Sex: Female

DRUGS (1)
  1. HUMIRA [Suspect]
     Active Substance: ADALIMUMAB
     Indication: RHEUMATOID ARTHRITIS
     Route: 058
     Dates: start: 20210121, end: 20210803

REACTIONS (8)
  - Oxygen saturation abnormal [Unknown]
  - Hypotension [Unknown]
  - Dyspnoea [Not Recovered/Not Resolved]
  - Heart valve replacement [Unknown]
  - Pneumonia [Recovered/Resolved]
  - Dehydration [Unknown]
  - Rales [Not Recovered/Not Resolved]
  - Mobility decreased [Not Recovered/Not Resolved]

NARRATIVE: CASE EVENT DATE: 2021
